FAERS Safety Report 8511498-1 (Version None)
Quarter: 2012Q3

REPORT INFORMATION
  Report Type: 
  Country: None (occurrence: None)
  Receive Date: 20120716
  Receipt Date: 20120706
  Transmission Date: 20120928
  Serious: Yes (Other)
  Sender: FDA-Public Use
  Company Number: BR-SANOFI-AVENTIS-2012SA048279

PATIENT
  Age: 59 Year
  Sex: Male
  Weight: 120 kg

DRUGS (10)
  1. CLIKSTAR [Suspect]
     Indication: DEVICE THERAPY
     Dates: start: 20090101
  2. DEFLAZACORT [Suspect]
     Indication: PAIN
     Route: 048
  3. MORPHINE SULFATE [Concomitant]
     Route: 048
  4. ATORVASTATIN CALCIUM [Concomitant]
     Route: 048
  5. LANTUS [Suspect]
     Route: 058
     Dates: start: 20090101
  6. LOSARTAN POTASSIUM [Concomitant]
     Indication: BLOOD PRESSURE ABNORMAL
     Route: 048
  7. OMEPRAZOLE [Concomitant]
     Indication: GASTRIC DISORDER
     Route: 048
  8. DEFLAZACORT [Suspect]
     Indication: INFLAMMATION
     Route: 048
  9. SERTRALINE HYDROCHLORIDE [Concomitant]
     Indication: DEPRESSION
     Route: 048
  10. HUMALOG [Concomitant]
     Dosage: ACCORDING TO GLYCEMIA
     Route: 058

REACTIONS (6)
  - METASTASIS [None]
  - THIRST [None]
  - LACRIMATION INCREASED [None]
  - PAIN IN EXTREMITY [None]
  - HYPERGLYCAEMIA [None]
  - ASTHENIA [None]
